FAERS Safety Report 9435456 (Version 3)
Quarter: 2014Q3

REPORT INFORMATION
  Report Type: Spontaneous
  Country: US (occurrence: US)
  Receive Date: 20130801
  Receipt Date: 20140728
  Transmission Date: 20150326
  Serious: Yes (Hospitalization, Other)
  Sender: FDA-Public Use
  Company Number: US-009507513-1307USA017108

PATIENT
  Sex: Female
  Weight: 63.49 kg

DRUGS (2)
  1. NUVARING [Suspect]
     Active Substance: ETHINYL ESTRADIOL\ETONOGESTREL
     Indication: CONTRACEPTION
     Dosage: UNK
     Route: 067
     Dates: start: 200706, end: 200901
  2. NUVARING [Suspect]
     Active Substance: ETHINYL ESTRADIOL\ETONOGESTREL
     Indication: ENDOMETRIOSIS
     Dosage: UNK
     Route: 067
     Dates: start: 201003, end: 20100622

REACTIONS (21)
  - Venous stent insertion [Unknown]
  - Deep vein thrombosis [Unknown]
  - Hyperkeratosis [Unknown]
  - Tachycardia [Unknown]
  - Ovarian cyst [Recovered/Resolved]
  - Migraine [Unknown]
  - Uterine dilation and curettage [Unknown]
  - Laparoscopic surgery [Unknown]
  - Hypothyroidism [Unknown]
  - Angioplasty [Unknown]
  - Vaginal haemorrhage [Not Recovered/Not Resolved]
  - Peripheral artery stenosis [Unknown]
  - Thrombolysis [Unknown]
  - Scoliosis [Unknown]
  - Cardiac murmur [Unknown]
  - Pulmonary embolism [Recovered/Resolved]
  - Uterine leiomyoma [Not Recovered/Not Resolved]
  - Vena cava filter insertion [Unknown]
  - Coagulopathy [Unknown]
  - Cervix disorder [Not Recovered/Not Resolved]
  - Off label use [Unknown]

NARRATIVE: CASE EVENT DATE: 2008
